FAERS Safety Report 7999496-8 (Version None)
Quarter: 2011Q4

REPORT INFORMATION
  Report Type: 
  Country: None (occurrence: None)
  Receive Date: 20111221
  Receipt Date: 20111215
  Transmission Date: 20120403
  Serious: No
  Sender: FDA-Public Use
  Company Number: US-PFIZER INC-2011305717

PATIENT
  Sex: Male
  Weight: 77.1 kg

DRUGS (10)
  1. DEXAMETHASONE [Concomitant]
     Dosage: 4 MG, UNK
  2. LANSOPRAZOLE [Concomitant]
     Dosage: 30 MG, UNK
  3. SUTENT [Suspect]
     Dosage: 50 MG, 1X/DAY TAKE 1 CAPSULE BY MOUTH EVERY DAY FOR 28 DAYS, 14 DAYS OFF.
     Route: 048
  4. SIMVASTATIN [Concomitant]
     Dosage: 5 MG, UNK
  5. PANTOPRAZOLE [Concomitant]
     Dosage: 20 MG, UNK
  6. AMLODIPINE [Concomitant]
     Dosage: 5 MG, UNK
  7. SERTRALINE [Concomitant]
     Dosage: 20 MG/ML, UNK
  8. MORPHINE SULFATE [Concomitant]
     Dosage: 30 MG, UNK
  9. LISINOPRIL [Concomitant]
     Dosage: 10 MG, UNK
  10. PROCHLORPERAZINE [Concomitant]
     Dosage: 10 MG, UNK

REACTIONS (3)
  - NAUSEA [None]
  - DYSGEUSIA [None]
  - DIZZINESS [None]
